FAERS Safety Report 7768180-8 (Version None)
Quarter: 2011Q3

REPORT INFORMATION
  Report Type: 
  Country: None (occurrence: None)
  Receive Date: 20110922
  Receipt Date: 20110922
  Transmission Date: 20111222
  Serious: Yes (Life-Threatening, Hospitalization, Disabling, Other)
  Sender: FDA-Public Use
  Company Number: None

PATIENT
  Age: 56 Year
  Sex: Female
  Weight: 72.574 kg

DRUGS (1)
  1. HYDRALAZINE HCL [Suspect]
     Indication: HYPERTENSION
     Dates: start: 20070101, end: 20090101

REACTIONS (6)
  - DIZZINESS [None]
  - LUPUS-LIKE SYNDROME [None]
  - LARGE INTESTINAL HAEMORRHAGE [None]
  - FATIGUE [None]
  - EPISTAXIS [None]
  - COAGULOPATHY [None]
